FAERS Safety Report 9384501 (Version 1)
Quarter: 2013Q3

REPORT INFORMATION
  Report Type: Spontaneous
  Country: JP (occurrence: JP)
  Receive Date: 20130705
  Receipt Date: 20130705
  Transmission Date: 20140515
  Serious: Yes (Other)
  Sender: FDA-Public Use
  Company Number: PHHY2013JP070661

PATIENT
  Sex: Male

DRUGS (1)
  1. VOLTAREN [Suspect]
     Dosage: 50 MG,
     Route: 054

REACTIONS (3)
  - Lumbar vertebral fracture [Unknown]
  - Compression fracture [Unknown]
  - Incorrect dose administered [Unknown]
